FAERS Safety Report 18842768 (Version 2)
Quarter: 2021Q1

REPORT INFORMATION
  Report Type: Spontaneous
  Country: FR (occurrence: FR)
  Receive Date: 20210203
  Receipt Date: 20210308
  Transmission Date: 20210419
  Serious: Yes (Hospitalization, Disabling, Other)
  Sender: FDA-Public Use
  Company Number: FR-US-PROVELL PHARMACEUTICALS LLC-9215683

PATIENT
  Age: 72 Year
  Sex: Female

DRUGS (5)
  1. LYSANXIA [Concomitant]
     Active Substance: PRAZEPAM
     Indication: PRODUCT USED FOR UNKNOWN INDICATION
  2. PROZAC [Concomitant]
     Active Substance: FLUOXETINE HYDROCHLORIDE
     Indication: PRODUCT USED FOR UNKNOWN INDICATION
  3. LEVOTHYROX [Suspect]
     Active Substance: LEVOTHYROXINE
     Dosage: LEVOTHYROX FROM MOROCCO STARTED FROM AN UNKNOWN DATE
  4. LEVOTHYROX [Suspect]
     Active Substance: LEVOTHYROXINE
     Dosage: LEVOTHYROXINE NF (CITRIC ACID WITH MANNITOL FORM)
     Route: 048
     Dates: start: 201804
  5. LEVOTHYROX [Suspect]
     Active Substance: LEVOTHYROXINE
     Indication: AUTOIMMUNE THYROIDITIS
     Dosage: LEVOTHYROXINE MERCK LACTOSE SERONO (OLD FORMULATION), INCREASED FROM 25 UG TO 50 UG AND THEN 75 UG
     Route: 048
     Dates: start: 1983, end: 2018

REACTIONS (16)
  - Myalgia [Recovered/Resolved]
  - Disability [Unknown]
  - Alopecia [Recovered/Resolved]
  - Insomnia [Recovered/Resolved]
  - Weight increased [Recovered/Resolved]
  - Giant cell arteritis [Recovered/Resolved]
  - Rheumatoid arthritis [Recovered/Resolved]
  - Nausea [Recovered/Resolved]
  - Drug intolerance [Recovered/Resolved]
  - Fibromyalgia [Recovered/Resolved]
  - Tri-iodothyronine decreased [Unknown]
  - Ill-defined disorder [Unknown]
  - Gait inability [Unknown]
  - Cardiac disorder [Recovered/Resolved]
  - Thyroid function test abnormal [Recovered/Resolved]
  - Unevaluable event [Recovered/Resolved]

NARRATIVE: CASE EVENT DATE: 2018
